FAERS Safety Report 14178089 (Version 1)
Quarter: 2017Q4

REPORT INFORMATION
  Report Type: Report from Study
  Country: UA (occurrence: UA)
  Receive Date: 20171110
  Receipt Date: 20171110
  Transmission Date: 20180321
  Serious: Yes (Hospitalization, Other)
  Sender: FDA-Public Use
  Company Number: UA-ASTRAZENECA-2017SE89153

PATIENT
  Age: 65 Year
  Sex: Male

DRUGS (48)
  1. ARGININE GLUTAMATE [Concomitant]
     Active Substance: ARGININE GLUTAMATE
     Indication: ASPARTATE AMINOTRANSFERASE INCREASED
     Route: 042
     Dates: start: 20170822, end: 20170829
  2. ESSENTIALE [Concomitant]
     Indication: ASPARTATE AMINOTRANSFERASE INCREASED
     Route: 042
     Dates: start: 20170822, end: 20170829
  3. METAMIZOLE SODIUM [Concomitant]
     Active Substance: METAMIZOLE SODIUM
     Indication: PREMEDICATION
     Dosage: 2.0ML ONCE/SINGLE ADMINISTRATION
     Route: 042
     Dates: start: 20170828, end: 20170829
  4. DROTAVERINE [Concomitant]
     Active Substance: DROTAVERINE
     Indication: ADVERSE EVENT
     Route: 030
     Dates: start: 20170828, end: 20170829
  5. BISOPROLOL [Concomitant]
     Active Substance: BISOPROLOL
     Indication: HYPERTENSION
     Route: 048
     Dates: start: 20170719, end: 20170918
  6. BISOPROLOL [Concomitant]
     Active Substance: BISOPROLOL
     Indication: HYPERTENSION
     Route: 048
     Dates: start: 20170919
  7. ONDANSETRON [Concomitant]
     Active Substance: ONDANSETRON
     Indication: PROPHYLAXIS OF NAUSEA AND VOMITING
     Dosage: 8.0MG ONCE/SINGLE ADMINISTRATION
     Route: 042
     Dates: start: 20170828, end: 20170828
  8. ACALABRUTINIB. [Suspect]
     Active Substance: ACALABRUTINIB
     Indication: MANTLE CELL LYMPHOMA
     Route: 048
     Dates: start: 20170828, end: 20170829
  9. ALLOPURINOL. [Concomitant]
     Active Substance: ALLOPURINOL
     Indication: HYPERURICAEMIA
     Route: 048
     Dates: start: 20170828, end: 20170831
  10. ALLOPURINOL. [Concomitant]
     Active Substance: ALLOPURINOL
     Indication: HYPERURICAEMIA
     Route: 048
     Dates: start: 20170901, end: 20170911
  11. ALLOPURINOL. [Concomitant]
     Active Substance: ALLOPURINOL
     Indication: TUMOUR LYSIS SYNDROME
     Route: 048
     Dates: start: 20170901, end: 20170911
  12. FUROSEMIDE. [Concomitant]
     Active Substance: FUROSEMIDE
     Indication: TUMOUR LYSIS SYNDROME
     Route: 042
     Dates: start: 20170821, end: 20170829
  13. METAMIZOLE SODIUM [Concomitant]
     Active Substance: METAMIZOLE SODIUM
     Indication: PREMEDICATION
     Dosage: 2.0ML ONCE/SINGLE ADMINISTRATION
     Route: 042
     Dates: start: 20170828, end: 20170829
  14. SUPRASTIN [Concomitant]
     Active Substance: CHLOROPYRAMINE HYDROCHLORIDE
     Indication: PREMEDICATION
     Dosage: 1.0ML ONCE/SINGLE ADMINISTRATION
     Route: 030
     Dates: start: 20170828, end: 20170828
  15. BENDAMUSTINE [Suspect]
     Active Substance: BENDAMUSTINE
     Indication: MANTLE CELL LYMPHOMA
     Dosage: 90.0MG/M2 ONCE/SINGLE ADMINISTRATION
     Route: 042
     Dates: start: 20170828, end: 20170828
  16. BENDAMUSTINE [Suspect]
     Active Substance: BENDAMUSTINE
     Indication: MANTLE CELL LYMPHOMA
     Dosage: 70.0MG/M2 ONCE/SINGLE ADMINISTRATION
     Route: 042
     Dates: start: 20171023, end: 20171023
  17. BENDAMUSTINE [Suspect]
     Active Substance: BENDAMUSTINE
     Indication: MANTLE CELL LYMPHOMA
     Dosage: 70.0MG/M2 ONCE/SINGLE ADMINISTRATION
     Route: 042
     Dates: start: 20171024, end: 20171024
  18. ALLOPURINOL. [Concomitant]
     Active Substance: ALLOPURINOL
     Indication: TUMOUR LYSIS SYNDROME
     Route: 048
     Dates: start: 20170828, end: 20170831
  19. FUROSEMIDE. [Concomitant]
     Active Substance: FUROSEMIDE
     Indication: TUMOUR LYSIS SYNDROME
     Route: 042
     Dates: start: 20170829, end: 20170829
  20. GLUCOSE SOLUTION 5 % [Concomitant]
     Indication: TUMOUR LYSIS SYNDROME
     Route: 042
     Dates: start: 20170829, end: 20170829
  21. NO-SPA [Concomitant]
     Active Substance: DROTAVERINE HYDROCHLORIDE
     Indication: ADVERSE EVENT
     Route: 030
     Dates: start: 20170828, end: 20170828
  22. WATER FOR INJECTION [Concomitant]
     Active Substance: WATER
     Indication: PRODUCT PREPARATION ERROR
     Dosage: 74.0ML ONCE/SINGLE ADMINISTRATION
     Route: 042
     Dates: start: 20170828, end: 20170828
  23. RITUXIMAB. [Suspect]
     Active Substance: RITUXIMAB
     Indication: MANTLE CELL LYMPHOMA
     Dosage: 375.0MG/M2 ONCE/SINGLE ADMINISTRATION
     Route: 042
     Dates: start: 20170926, end: 20170926
  24. RITUXIMAB. [Suspect]
     Active Substance: RITUXIMAB
     Indication: MANTLE CELL LYMPHOMA
     Dosage: 375.0MG/M2 ONCE/SINGLE ADMINISTRATION
     Route: 042
     Dates: start: 20171023, end: 20171023
  25. ACETYLSALICYLIC ACID [Concomitant]
     Active Substance: ASPIRIN
     Indication: THROMBOSIS
     Route: 048
     Dates: start: 20170719, end: 20170911
  26. ALLOPURINOL. [Concomitant]
     Active Substance: ALLOPURINOL
     Indication: TUMOUR LYSIS SYNDROME
     Route: 048
     Dates: start: 20170815, end: 20170820
  27. GLUCOSE SOLUTION 5 % [Concomitant]
     Indication: TUMOUR LYSIS SYNDROME
     Route: 042
     Dates: start: 20170821, end: 20170829
  28. SODIUM CHLORIDE. [Concomitant]
     Active Substance: SODIUM CHLORIDE
     Indication: TUMOUR LYSIS SYNDROME
     Dosage: 696.0ML ONCE/SINGLE ADMINISTRATION
     Route: 042
     Dates: start: 20170828, end: 20170828
  29. DIMEDROLUM [Concomitant]
     Active Substance: DIPHENHYDRAMINE HYDROCHLORIDE
     Indication: PREMEDICATION
     Dosage: 1.0ML ONCE/SINGLE ADMINISTRATION
     Route: 030
     Dates: start: 20170828, end: 20170829
  30. METAMIZOLE SODIUM [Concomitant]
     Active Substance: METAMIZOLE SODIUM
     Indication: PREMEDICATION
     Dosage: 2.0ML ONCE/SINGLE ADMINISTRATION
     Route: 042
     Dates: start: 20170828, end: 20170828
  31. RITUXIMAB. [Suspect]
     Active Substance: RITUXIMAB
     Indication: MANTLE CELL LYMPHOMA
     Dosage: 375.0MG/M2 ONCE/SINGLE ADMINISTRATION
     Route: 042
     Dates: start: 20170828, end: 20170828
  32. ALLOPURINOL. [Concomitant]
     Active Substance: ALLOPURINOL
     Indication: TUMOUR LYSIS SYNDROME
     Route: 048
     Dates: start: 20170821, end: 20170827
  33. GLUCOSE SOLUTION 5 % [Concomitant]
     Indication: TUMOUR LYSIS SYNDROME
     Route: 042
     Dates: start: 20170720, end: 20170803
  34. SODIUM CHLORIDE. [Concomitant]
     Active Substance: SODIUM CHLORIDE
     Indication: TUMOUR LYSIS SYNDROME
     Route: 042
     Dates: start: 20170821, end: 20170829
  35. SODIUM CHLORIDE. [Concomitant]
     Active Substance: SODIUM CHLORIDE
     Indication: TUMOUR LYSIS SYNDROME
     Dosage: 200.0ML ONCE/SINGLE ADMINISTRATION
     Route: 042
     Dates: start: 20170829, end: 20170829
  36. ESSENTIALE [Concomitant]
     Indication: ASPARTATE AMINOTRANSFERASE INCREASED
     Route: 042
     Dates: start: 20170720, end: 20170803
  37. PARACETAMOLUM [Concomitant]
     Active Substance: ACETAMINOPHEN
     Indication: PREMEDICATION
     Dosage: 1000.0MG ONCE/SINGLE ADMINISTRATION
     Route: 048
     Dates: start: 20170828, end: 20170828
  38. PREDNISOLONE. [Concomitant]
     Active Substance: PREDNISOLONE
     Indication: PREMEDICATION
     Dosage: 120.0MG ONCE/SINGLE ADMINISTRATION
     Route: 042
     Dates: start: 20170828, end: 20170828
  39. BENDAMUSTINE [Suspect]
     Active Substance: BENDAMUSTINE
     Indication: MANTLE CELL LYMPHOMA
     Dosage: 70.0MG/M2 ONCE/SINGLE ADMINISTRATION
     Route: 042
     Dates: start: 20170927, end: 20170927
  40. BENDAMUSTINE [Suspect]
     Active Substance: BENDAMUSTINE
     Indication: MANTLE CELL LYMPHOMA
     Dosage: 70.0MG/M2 ONCE/SINGLE ADMINISTRATION
     Route: 042
     Dates: start: 20170926, end: 20170926
  41. DIMEDROLUM [Concomitant]
     Active Substance: DIPHENHYDRAMINE HYDROCHLORIDE
     Indication: PREMEDICATION
     Dosage: 3.0ML ONCE/SINGLE ADMINISTRATION
     Route: 042
     Dates: start: 20170828, end: 20170828
  42. ACALABRUTINIB. [Suspect]
     Active Substance: ACALABRUTINIB
     Indication: MANTLE CELL LYMPHOMA
     Route: 048
     Dates: start: 20170829, end: 20170829
  43. ACALABRUTINIB. [Suspect]
     Active Substance: ACALABRUTINIB
     Indication: MANTLE CELL LYMPHOMA
     Route: 048
     Dates: start: 20170905, end: 20170905
  44. ACALABRUTINIB. [Suspect]
     Active Substance: ACALABRUTINIB
     Indication: MANTLE CELL LYMPHOMA
     Route: 048
     Dates: start: 20170906, end: 20170925
  45. ALLOPURINOL. [Concomitant]
     Active Substance: ALLOPURINOL
     Indication: HYPERURICAEMIA
     Route: 048
     Dates: start: 20170815, end: 20170820
  46. ALLOPURINOL. [Concomitant]
     Active Substance: ALLOPURINOL
     Indication: HYPERURICAEMIA
     Route: 048
     Dates: start: 20170821, end: 20170827
  47. FUROSEMIDE. [Concomitant]
     Active Substance: FUROSEMIDE
     Indication: TUMOUR LYSIS SYNDROME
     Route: 042
     Dates: start: 20170901, end: 20170903
  48. SODIUM CHLORIDE. [Concomitant]
     Active Substance: SODIUM CHLORIDE
     Indication: TUMOUR LYSIS SYNDROME
     Dosage: 100.0ML ONCE/SINGLE ADMINISTRATION
     Route: 042
     Dates: start: 20170829, end: 20170904

REACTIONS (4)
  - Cardiac failure chronic [Recovered/Resolved]
  - Pulmonary oedema [Recovered/Resolved]
  - Thrombocytopenia [Recovered/Resolved]
  - Ventricular extrasystoles [Recovered/Resolved]

NARRATIVE: CASE EVENT DATE: 20170829
